FAERS Safety Report 14302337 (Version 1)
Quarter: 2017Q4

REPORT INFORMATION
  Report Type: Spontaneous
  Country: US (occurrence: US)
  Receive Date: 20171219
  Receipt Date: 20171219
  Transmission Date: 20180321
  Serious: No
  Sender: FDA-Public Use
  Company Number: US-SUPERNUS PHARMACEUTICALS, INC.-2017SUP00186

PATIENT
  Sex: Female
  Weight: 77.98 kg

DRUGS (6)
  1. HYDROXYZINE [Concomitant]
     Active Substance: HYDROXYZINE HYDROCHLORIDE
  2. TROKENDI XR [Suspect]
     Active Substance: TOPIRAMATE
     Indication: PERSONALITY DISORDER
     Dosage: 200 MG, 1X/DAY
     Route: 048
     Dates: start: 2015
  3. SUBOXONE [Concomitant]
     Active Substance: BUPRENORPHINE HYDROCHLORIDE\NALOXONE HYDROCHLORIDE
  4. TROKENDI XR [Suspect]
     Active Substance: TOPIRAMATE
     Indication: ANXIETY
  5. TROKENDI XR [Suspect]
     Active Substance: TOPIRAMATE
     Indication: PERSONALITY DISORDER
     Dosage: 100 MG, 1X/DAY
     Route: 048
     Dates: start: 2015
  6. TROKENDI XR [Suspect]
     Active Substance: TOPIRAMATE
     Indication: ANXIETY

REACTIONS (2)
  - Fatigue [Recovered/Resolved]
  - Off label use [Not Recovered/Not Resolved]

NARRATIVE: CASE EVENT DATE: 2015
